FAERS Safety Report 8110319-9 (Version None)
Quarter: 2012Q1

REPORT INFORMATION
  Report Type: 
  Country: None (occurrence: None)
  Receive Date: 20120202
  Receipt Date: 20120118
  Transmission Date: 20120608
  Serious: Yes (Death)
  Sender: FDA-Public Use
  Company Number: JP-ROCHE-799915

PATIENT
  Sex: Male

DRUGS (6)
  1. LOXONIN [Concomitant]
     Indication: PREMEDICATION
     Dosage: 60 MG, SINGLE
  2. MABTHERA [Suspect]
     Indication: B-CELL LYMPHOMA
     Route: 042
  3. ZEVALIN [Suspect]
     Indication: B-CELL LYMPHOMA
     Dosage: UNK, IN-111 ZEVALIN
     Route: 042
  4. POLARAMINE [Concomitant]
     Indication: PREMEDICATION
     Dosage: 2 MG, SINGLE
  5. MABTHERA [Suspect]
     Route: 042
  6. ZEVALIN [Suspect]
     Dosage: Y-90 ZEVALIN, 11.1 MBQ/KG
     Route: 042

REACTIONS (1)
  - HEPATITIS C [None]
